FAERS Safety Report 12372343 (Version 1)
Quarter: 2016Q2

REPORT INFORMATION
  Report Type: Report from Study
  Country: US (occurrence: DE)
  Receive Date: 20160516
  Receipt Date: 20160516
  Transmission Date: 20160815
  Serious: Yes (Hospitalization, Other)
  Sender: FDA-Public Use
  Company Number: DE-BIOGEN-2016BI00237821

PATIENT
  Age: 36 Year
  Sex: Male
  Weight: 90 kg

DRUGS (1)
  1. AVONEX [Suspect]
     Active Substance: INTERFERON BETA-1A
     Indication: MULTIPLE SCLEROSIS
     Route: 030
     Dates: start: 20151011, end: 201601

REACTIONS (5)
  - Drug abuse [Not Recovered/Not Resolved]
  - Suicidal ideation [Unknown]
  - Visual impairment [Not Recovered/Not Resolved]
  - Epilepsy [Recovered/Resolved]
  - Tremor [Not Recovered/Not Resolved]

NARRATIVE: CASE EVENT DATE: 20151011
